FAERS Safety Report 5672741-X (Version None)
Quarter: 2008Q1

REPORT INFORMATION
  Report Type: 
  Country: None (occurrence: None)
  Receive Date: 20080319
  Receipt Date: 20070816
  Transmission Date: 20080703
  Serious: No
  Sender: FDA-Public Use
  Company Number: US-KINGPHARMUSA00001-K200701042

PATIENT

DRUGS (7)
  1. ALTACE [Suspect]
     Indication: HYPERTENSION
     Dosage: 2.5 MG, QD
     Route: 048
     Dates: start: 20070701
  2. ASPIRIN [Concomitant]
     Dosage: 325 MG, QD
  3. STATINS [Concomitant]
  4. PSYLLIUM [Concomitant]
     Indication: PROPHYLAXIS
     Dosage: 50% PSYLLIUM, 5 MG POTASSIUM, QD
     Route: 048
  5. LIPITOR [Concomitant]
     Indication: BLOOD CHOLESTEROL INCREASED
     Dosage: 10 MG, QD
     Route: 048
  6. FLOMAX                             /00889901/ [Concomitant]
     Indication: BENIGN PROSTATIC HYPERPLASIA
     Dosage: .4 MG, QD
  7. CIPRO                              /00697201/ [Concomitant]
     Indication: PROSTATITIS
     Dosage: 500 MG, BID
     Route: 048

REACTIONS (10)
  - COUGH [None]
  - DIARRHOEA [None]
  - DYSPHAGIA [None]
  - FREQUENT BOWEL MOVEMENTS [None]
  - HUNGER [None]
  - INCREASED UPPER AIRWAY SECRETION [None]
  - POSTNASAL DRIP [None]
  - SENSATION OF FOREIGN BODY [None]
  - TINNITUS [None]
  - WEIGHT DECREASED [None]
